FAERS Safety Report 24842082 (Version 4)
Quarter: 2025Q1

REPORT INFORMATION
  Report Type: Report from Study
  Country: CA (occurrence: CA)
  Receive Date: 20250114
  Receipt Date: 20250214
  Transmission Date: 20250408
  Serious: Yes (Other)
  Sender: ROCHE
  Company Number: CA-002147023-NVSC2025CA002699

PATIENT
  Age: 63 Year
  Sex: Female

DRUGS (3)
  1. XOLAIR [Suspect]
     Active Substance: OMALIZUMAB
     Indication: Chronic spontaneous urticaria
     Dosage: 300 MG, 4 WEEKS
     Route: 058
     Dates: start: 20250106
  2. XOLAIR [Suspect]
     Active Substance: OMALIZUMAB
     Route: 058
  3. ADVIL [Concomitant]
     Active Substance: IBUPROFEN
     Indication: Product used for unknown indication
     Route: 065

REACTIONS (12)
  - Blood pressure increased [Unknown]
  - Nervousness [Unknown]
  - Pruritus [Recovered/Resolved]
  - Anxiety [Unknown]
  - Throat irritation [Recovered/Resolved]
  - Tongue disorder [Recovered/Resolved]
  - Hypertension [Unknown]
  - Hypersensitivity [Unknown]
  - Pain in extremity [Unknown]
  - Arthralgia [Unknown]
  - Abdominal pain [Unknown]
  - Diarrhoea [Unknown]

NARRATIVE: CASE EVENT DATE: 20250106
